FAERS Safety Report 26011781 (Version 1)
Quarter: 2025Q4

REPORT INFORMATION
  Report Type: Report from Study
  Country: CN (occurrence: CN)
  Receive Date: 20251107
  Receipt Date: 20251107
  Transmission Date: 20260118
  Serious: Yes (Death)
  Sender: ROCHE
  Company Number: CN-ROCHE-10000428137

PATIENT
  Age: 68 Year
  Sex: Male

DRUGS (2)
  1. ATEZOLIZUMAB [Suspect]
     Active Substance: ATEZOLIZUMAB
     Indication: Hepatic cancer
     Dosage: 1200 MG/20 ML ONCE EVERY 21 DAYS.
     Route: 042
     Dates: start: 20231122, end: 20251002
  2. BEVACIZUMAB [Suspect]
     Active Substance: BEVACIZUMAB
     Indication: Hepatic cancer
     Route: 042
     Dates: start: 20231122, end: 20251002

REACTIONS (1)
  - Death [Fatal]

NARRATIVE: CASE EVENT DATE: 20251104
